FAERS Safety Report 17026829 (Version 1)
Quarter: 2019Q4

REPORT INFORMATION
  Report Type: Report from Study
  Country: US (occurrence: US)
  Receive Date: 20191113
  Receipt Date: 20191113
  Transmission Date: 20200122
  Serious: Yes (Death, Other)
  Sender: FDA-Public Use
  Company Number: US-PFIZER INC-2019421643

PATIENT
  Age: 60 Year
  Sex: Female

DRUGS (1)
  1. IBRANCE [Suspect]
     Active Substance: PALBOCICLIB
     Indication: BREAST CANCER FEMALE
     Dosage: 125 MG, CYCLIC (21 DAYS ON, 7 DAYS OFF)
     Route: 048
     Dates: start: 20190829

REACTIONS (5)
  - Dysphagia [Recovering/Resolving]
  - Death [Fatal]
  - Oedema peripheral [Recovering/Resolving]
  - Ageusia [Not Recovered/Not Resolved]
  - Alopecia [Unknown]

NARRATIVE: CASE EVENT DATE: 2019
